FAERS Safety Report 8764270 (Version 2)
Quarter: 2012Q4

REPORT INFORMATION
  Report Type: 
  Country: JP (occurrence: JP)
  Receive Date: 20120831
  Receipt Date: 20120907
  Transmission Date: 20130627
  Serious: Yes (Hospitalization, Other)
  Sender: FDA-Public Use
  Company Number: JP-EISAI INC-E3810-05826-SPO-JP

PATIENT
  Age: 64 Year
  Sex: Male

DRUGS (8)
  1. PARIET [Suspect]
     Indication: GASTROESOPHAGEAL REFLUX
     Route: 048
  2. CILNIDIPINE [Concomitant]
     Dosage: UNKNOWN
     Route: 065
  3. ATORVASTATIN CALCIUM HYDRATE [Concomitant]
     Dosage: UNKNOWN
     Route: 065
  4. MECOBALAMIN [Concomitant]
     Dosage: UNKNOWN
     Route: 065
  5. LIMAPROST ALFADEX [Concomitant]
     Dosage: UNKNOWN
     Route: 065
  6. REBAMIPIDE [Concomitant]
     Dosage: UNKNOWN
     Route: 065
  7. CELECOXIB [Concomitant]
     Dosage: UNKNOWN
     Route: 065
  8. ZARUTOPUROFEN [Concomitant]
     Dosage: UNKNOWN
     Route: 065

REACTIONS (8)
  - Chondrocalcinosis pyrophosphate [Recovered/Resolved]
  - Hypocalcaemia [Recovered/Resolved]
  - Hypokalaemia [Recovered/Resolved]
  - Tremor [Recovered/Resolved]
  - Hypomagnesaemia [Recovered/Resolved]
  - Convulsion [Recovered/Resolved]
  - Dizziness [Recovered/Resolved]
  - Nausea [Recovered/Resolved]
